FAERS Safety Report 4432952-8 (Version None)
Quarter: 2004Q3

REPORT INFORMATION
  Report Type: 
  Country: None (occurrence: None)
  Receive Date: 20040823
  Receipt Date: 20040811
  Transmission Date: 20050211
  Serious: Yes (Life-Threatening, Hospitalization)
  Sender: FDA-Public Use
  Company Number: ZANA001335

PATIENT
  Age: 23 Year
  Sex: Male

DRUGS (9)
  1. ZANAFLEX [Suspect]
     Indication: PAIN
     Dosage: 32 MG DAILY ORAL
     Route: 048
  2. METHADONE (METHADONE) [Suspect]
     Indication: PAIN
     Dosage: 50 MG DAILY
  3. RIVOTRIL (CLONAZEPAM) [Concomitant]
  4. COUMADIN [Concomitant]
  5. VIOXX [Concomitant]
  6. NEURONTIN [Concomitant]
  7. BACLOFEN [Concomitant]
  8. BACTRIM [Concomitant]
  9. PHENCYCLIDINE (PHENCYCLIDINE) [Concomitant]

REACTIONS (3)
  - DRUG SCREEN POSITIVE [None]
  - RESPIRATORY DEPRESSION [None]
  - URINARY TRACT INFECTION [None]
